FAERS Safety Report 6967791 (Version 2)
Quarter: 2019Q1

REPORT INFORMATION
  Report Type: Spontaneous
  Country: GB (occurrence: GB)
  Receive Date: 20090413
  Receipt Date: 20190307
  Transmission Date: 20190418
  Serious: Yes (Other)
  Sender: FDA-Public Use
  Company Number: GB-PFIZER INC-2009191630

PATIENT
  Age: 23 Year
  Sex: Female
  Weight: 75 kg

DRUGS (2)
  1. CHAMPIX [Suspect]
     Active Substance: VARENICLINE TARTRATE
     Dosage: 1 MG, UNK
     Route: 048
     Dates: start: 20080705, end: 20080815
  2. IMPLANON [Concomitant]
     Active Substance: ETONOGESTREL
     Dosage: UNK
     Route: 058
     Dates: start: 20080506

REACTIONS (1)
  - Vaginal haemorrhage [Recovered/Resolved]

NARRATIVE: CASE EVENT DATE: 20080717
